FAERS Safety Report 9691771 (Version 5)
Quarter: 2014Q1

REPORT INFORMATION
  Report Type: Spontaneous
  Country: JP (occurrence: JP)
  Receive Date: 20131115
  Receipt Date: 20140310
  Transmission Date: 20141002
  Serious: Yes (Death, Life-Threatening, Hospitalization)
  Sender: FDA-Public Use
  Company Number: JP-ASTRAZENECA-2013SE84240

PATIENT
  Age: 25152 Day
  Sex: Male
  Weight: 56 kg

DRUGS (8)
  1. NEXIUM [Suspect]
     Indication: PROPHYLAXIS AGAINST GASTROINTESTINAL ULCER
     Route: 048
     Dates: start: 20131024, end: 20131102
  2. XARELTO [Suspect]
     Route: 048
     Dates: start: 20131024, end: 20131102
  3. ARTIST [Concomitant]
     Route: 048
     Dates: start: 20131024, end: 20131102
  4. CIBENOL [Concomitant]
     Route: 048
     Dates: start: 20131024, end: 20131102
  5. ALLEGRA [Concomitant]
     Route: 048
     Dates: start: 20131024, end: 20131102
  6. EQUA [Concomitant]
     Route: 048
     Dates: start: 20131024, end: 20131102
  7. SENNARIDE [Concomitant]
     Route: 048
     Dates: start: 20131024, end: 20131102
  8. DILTIAZEM HYDROCHLORIDE R [Concomitant]
     Route: 048
     Dates: start: 20131030, end: 20131102

REACTIONS (11)
  - Acute hepatic failure [Fatal]
  - Disseminated intravascular coagulation [Fatal]
  - Renal failure acute [Not Recovered/Not Resolved]
  - General physical health deterioration [Unknown]
  - Palpitations [Unknown]
  - Sleep disorder due to general medical condition, insomnia type [Unknown]
  - Pleural effusion [Unknown]
  - Inflammation [Not Recovered/Not Resolved]
  - Metabolic acidosis [Unknown]
  - Bacterial infection [Unknown]
  - Therapy cessation [Unknown]
